FAERS Safety Report 14341472 (Version 1)
Quarter: 2018Q1

REPORT INFORMATION
  Report Type: Report from Study
  Country: None (occurrence: US)
  Receive Date: 20180102
  Receipt Date: 20180102
  Transmission Date: 20180509
  Serious: Yes (Hospitalization)
  Sender: FDA-Public Use
  Company Number: US-ABBVIE-17K-163-2196455-00

PATIENT
  Age: 55 Year
  Sex: Female
  Weight: 78.09 kg

DRUGS (4)
  1. HUMIRA [Suspect]
     Active Substance: ADALIMUMAB
     Indication: PSORIASIS
  2. VOLTAREN [Suspect]
     Active Substance: DICLOFENAC SODIUM
     Indication: PRODUCT USED FOR UNKNOWN INDICATION
     Route: 065
  3. HUMIRA [Suspect]
     Active Substance: ADALIMUMAB
     Indication: ANKYLOSING SPONDYLITIS
     Route: 058
     Dates: start: 2015, end: 201709
  4. INDOMETHACIN. [Suspect]
     Active Substance: INDOMETHACIN
     Indication: COLITIS
     Route: 065

REACTIONS (10)
  - Wound dehiscence [Recovering/Resolving]
  - Weight decreased [Not Recovered/Not Resolved]
  - Diverticulitis [Recovered/Resolved]
  - Diverticulitis [Recovered/Resolved]
  - Colitis [Recovered/Resolved]
  - Dizziness [Recovered/Resolved]
  - Post procedural discharge [Recovering/Resolving]
  - Diverticulitis [Recovered/Resolved]
  - Large intestine perforation [Recovered/Resolved]
  - Palpitations [Recovered/Resolved]

NARRATIVE: CASE EVENT DATE: 201510
